FAERS Safety Report 5792152-6 (Version None)
Quarter: 2008Q2

REPORT INFORMATION
  Report Type: 
  Country: None (occurrence: None)
  Receive Date: 20080626
  Receipt Date: 20080421
  Transmission Date: 20081010
  Serious: No
  Sender: FDA-Public Use
  Company Number: US-ASTRAZENECA-2008UW08128

PATIENT
  Age: 8 Month
  Sex: Male
  Weight: 10 kg

DRUGS (5)
  1. PULMICORT RESPULES [Suspect]
     Indication: BRONCHIOLITIS
     Route: 055
     Dates: start: 20080101
  2. PREVACID [Concomitant]
  3. ZYRTEC [Concomitant]
  4. XOPENEX [Concomitant]
  5. AUGMENTIN '125' [Concomitant]

REACTIONS (1)
  - PSYCHOMOTOR HYPERACTIVITY [None]
